FAERS Safety Report 8548596-2 (Version None)
Quarter: 2012Q2

REPORT INFORMATION
  Report Type: 
  Country: None (occurrence: None)
  Receive Date: 20120416
  Receipt Date: 20110708
  Transmission Date: 20120825
  Serious: Yes (Hospitalization)
  Sender: FDA-Public Use
  Company Number: PHHY2011US44072

PATIENT
  Age: 85 Year
  Sex: Female

DRUGS (6)
  1. NORVASC [Suspect]
     Dates: end: 20110511
  2. NAMENDA [Concomitant]
  3. DIOVAN [Suspect]
  4. EXELON [Concomitant]
  5. MICARDIS [Concomitant]
  6. METOPROLOL TARTRATE [Concomitant]

REACTIONS (4)
  - JOINT SWELLING [None]
  - BLOOD PRESSURE INCREASED [None]
  - DRUG INEFFECTIVE [None]
  - OEDEMA PERIPHERAL [None]
